FAERS Safety Report 13264839 (Version 1)
Quarter: 2017Q1

REPORT INFORMATION
  Report Type: Spontaneous
  Country: US (occurrence: US)
  Receive Date: 20170223
  Receipt Date: 20170223
  Transmission Date: 20170428
  Serious: Yes (Hospitalization)
  Sender: FDA-Public Use
  Company Number: US-LPDUSPRD-20170178

PATIENT

DRUGS (11)
  1. PROPOFOL. [Suspect]
     Active Substance: PROPOFOL
     Dosage: DOSE NOT STATED
     Route: 065
  2. DEXAMETHASONE SODIUM PHOSPHATE INJECTION, USP (4901-25) [Concomitant]
     Active Substance: DEXAMETHASONE SODIUM PHOSPHATE
     Dosage: DOSE NOT STATED
     Route: 065
  3. FENTANYL. [Suspect]
     Active Substance: FENTANYL
     Dosage: DOSE NOT STATED
     Route: 065
  4. LIDOCAINE HCL INJECTION, USP (0517-9402-01) [Suspect]
     Active Substance: LIDOCAINE HYDROCHLORIDE
     Dosage: DOSE NOT PROVIDED
     Route: 065
  5. DESFLURANE. [Suspect]
     Active Substance: DESFLURANE
     Dosage: DOSE NOT STATED
     Route: 065
  6. REMIFENTANYL [Suspect]
     Active Substance: REMIFENTANIL
     Dosage: DOSE NOT STATED
     Route: 065
  7. MIDAZOLAM [Suspect]
     Active Substance: MIDAZOLAM HYDROCHLORIDE
     Dosage: DOSE NOT STATED
     Route: 065
  8. NORMAL SALINE SOLUTION [Concomitant]
     Dosage: 2500 ML
     Route: 065
  9. ALBUMIN [Concomitant]
     Active Substance: ALBUMIN HUMAN
     Dosage: 2000 ML
     Route: 065
  10. SEVOFLURANE. [Suspect]
     Active Substance: SEVOFLURANE
     Dosage: DOSE NOT STATED
     Route: 065
  11. CEFTRIAXONE. [Concomitant]
     Active Substance: CEFTRIAXONE
     Dosage: DOSE NOT STATED
     Route: 065

REACTIONS (1)
  - Renal tubular disorder [Recovered/Resolved]
